FAERS Safety Report 7795112-9 (Version None)
Quarter: 2011Q4

REPORT INFORMATION
  Report Type: 
  Country: None (occurrence: None)
  Receive Date: 20111004
  Receipt Date: 20111003
  Transmission Date: 20120403
  Serious: No
  Sender: FDA-Public Use
  Company Number: US-JNJFOC-20110905513

PATIENT
  Age: 49 Year
  Sex: Female
  Weight: 49.44 kg

DRUGS (4)
  1. PREMARIN [Concomitant]
     Indication: HORMONE REPLACEMENT THERAPY
     Route: 065
     Dates: end: 20110801
  2. DURAGESIC-100 [Suspect]
     Indication: FIBROMYALGIA
     Dosage: 100 UG/HR + 25 UG/HR =125 UG/HR
     Route: 062
     Dates: end: 20110801
  3. PAIN MEDICATION (UNKNOWN) [Concomitant]
     Indication: PAIN MANAGEMENT
     Route: 065
  4. FENTANYL [Suspect]
     Indication: FIBROMYALGIA
     Route: 062
     Dates: start: 20110801, end: 20110801

REACTIONS (9)
  - PAIN [None]
  - PRODUCT QUALITY ISSUE [None]
  - ABASIA [None]
  - INSOMNIA [None]
  - TREATMENT NONCOMPLIANCE [None]
  - HOT FLUSH [None]
  - INTENTIONAL DRUG MISUSE [None]
  - WITHDRAWAL SYNDROME [None]
  - MALAISE [None]
